FAERS Safety Report 10542734 (Version 2)
Quarter: 2014Q4

REPORT INFORMATION
  Report Type: Report from Study
  Country: CO (occurrence: CO)
  Receive Date: 20141027
  Receipt Date: 20141208
  Transmission Date: 20150529
  Serious: Yes (Hospitalization)
  Sender: FDA-Public Use
  Company Number: CO-ROCHE-1480295

PATIENT
  Sex: Male
  Weight: 59 kg

DRUGS (2)
  1. LUCENTIS [Suspect]
     Active Substance: RANIBIZUMAB
     Indication: RETINAL OEDEMA
  2. LUCENTIS [Suspect]
     Active Substance: RANIBIZUMAB
     Indication: RETINAL HAEMORRHAGE
     Route: 050

REACTIONS (2)
  - Renal disorder [Unknown]
  - Product use issue [Unknown]
